FAERS Safety Report 10204113 (Version 1)
Quarter: 2014Q2

REPORT INFORMATION
  Report Type: Report from Study
  Country: US (occurrence: US)
  Receive Date: 20140529
  Receipt Date: 20140529
  Transmission Date: 20141212
  Serious: Yes (Disabling, Other)
  Sender: FDA-Public Use
  Company Number: US-SA-2014SA068662

PATIENT
  Sex: Female

DRUGS (1)
  1. LANTUS [Suspect]
     Indication: PRODUCT USED FOR UNKNOWN INDICATION
     Route: 058

REACTIONS (5)
  - Disability [Unknown]
  - Knee arthroplasty [Unknown]
  - Cardiac disorder [Unknown]
  - Hearing impaired [Unknown]
  - Blood glucose increased [Unknown]
